FAERS Safety Report 6766988-9 (Version None)
Quarter: 2010Q2

REPORT INFORMATION
  Report Type: 
  Country: None (occurrence: None)
  Receive Date: 20100611
  Receipt Date: 20100602
  Transmission Date: 20101027
  Serious: Yes (Congenital Anomaly)
  Sender: FDA-Public Use
  Company Number: US-ROCHE-651750

PATIENT
  Sex: Male
  Weight: 7.3 kg

DRUGS (6)
  1. TRASTUZUMAB [Suspect]
     Indication: BREAST CANCER
     Route: 064
  2. NYSTATIN [Concomitant]
     Indication: RASH
     Dosage: UNK
     Dates: start: 20090626
  3. NYSTATIN [Concomitant]
     Dosage: UNK
     Dates: start: 20091109
  4. BACTROBAN [Concomitant]
     Indication: RASH
     Dosage: UNK
     Dates: start: 20091109
  5. ZITHROMAX [Concomitant]
     Indication: NASAL CONGESTION
     Dosage: UNK
     Dates: start: 20091204
  6. ZITHROMAX [Concomitant]

REACTIONS (5)
  - COW'S MILK INTOLERANCE [None]
  - MILIA [None]
  - NASAL CONGESTION [None]
  - RHINORRHOEA [None]
  - VENTRICULAR SEPTAL DEFECT [None]
